FAERS Safety Report 4265457-8 (Version None)
Quarter: 2004Q1

REPORT INFORMATION
  Report Type: 
  Country: None (occurrence: None)
  Receive Date: 20040107
  Receipt Date: 20031121
  Transmission Date: 20041129
  Serious: Yes (Other)
  Sender: FDA-Public Use
  Company Number: 200322113GDDC

PATIENT
  Age: 47 Year
  Sex: Female
  Weight: 89 kg

DRUGS (6)
  1. ARAVA [Suspect]
     Indication: RHEUMATOID ARTHRITIS
     Route: 048
     Dates: start: 20010924, end: 20031006
  2. CIMETIDINE HCL [Concomitant]
     Indication: DYSPEPSIA
     Route: 048
     Dates: start: 19940101
  3. AMITRIPTYLINE [Concomitant]
     Indication: PAIN
     Route: 048
     Dates: start: 20000403
  4. PREMARIN [Concomitant]
     Indication: MENOPAUSAL SYMPTOMS
     Route: 048
     Dates: start: 20000801
  5. CO-TENIDONE [Concomitant]
     Indication: HYPERTENSION
     Route: 048
     Dates: start: 20020101
  6. CO-DYDRAMOL [Concomitant]
     Indication: PAIN
     Route: 048
     Dates: start: 19940101

REACTIONS (13)
  - ALANINE AMINOTRANSFERASE INCREASED [None]
  - ASPARTATE AMINOTRANSFERASE INCREASED [None]
  - BLOOD ALKALINE PHOSPHATASE INCREASED [None]
  - BLOOD LACTATE DEHYDROGENASE INCREASED [None]
  - EOSINOPHIL COUNT INCREASED [None]
  - ERYTHEMA MULTIFORME [None]
  - GAMMA-GLUTAMYLTRANSFERASE INCREASED [None]
  - HYPERTENSION [None]
  - LIVER FUNCTION TEST ABNORMAL [None]
  - PEMPHIGUS [None]
  - RASH [None]
  - SCAR [None]
  - TOXIC EPIDERMAL NECROLYSIS [None]
